FAERS Safety Report 10628862 (Version 1)
Quarter: 2014Q4

REPORT INFORMATION
  Report Type: Spontaneous
  Country: US (occurrence: US)
  Receive Date: 20141205
  Receipt Date: 20141205
  Transmission Date: 20150529
  Serious: No
  Sender: FDA-Public Use
  Company Number: US-BRISTOL-MYERS SQUIBB COMPANY-21489216

PATIENT
  Age: 69 Year
  Sex: Male
  Weight: 117.91 kg

DRUGS (10)
  1. VITAMIN B12 [Concomitant]
     Active Substance: CYANOCOBALAMIN
  2. DHEA [Concomitant]
     Active Substance: DEHYDROEPIANDROSTERONE-3-SULFATE SODIUM
  3. METOPROLOL [Concomitant]
     Active Substance: METOPROLOL
  4. FOLIC ACID. [Concomitant]
     Active Substance: FOLIC ACID
  5. ONGLYZA [Suspect]
     Active Substance: SAXAGLIPTIN HYDROCHLORIDE
     Indication: TYPE 2 DIABETES MELLITUS
     Dosage: MEDICATION STOPPED AND RESTARTED
     Route: 048
  6. LORAZEPAM. [Concomitant]
     Active Substance: LORAZEPAM
  7. ENALAPRIL [Concomitant]
     Active Substance: ENALAPRIL
  8. XARELTO [Concomitant]
     Active Substance: RIVAROXABAN
  9. CRESTOR [Concomitant]
     Active Substance: ROSUVASTATIN CALCIUM
  10. VITAMIN D [Concomitant]
     Active Substance: CHOLECALCIFEROL

REACTIONS (1)
  - Blood glucose increased [Unknown]
